FAERS Safety Report 17934056 (Version 1)
Quarter: 2020Q2

REPORT INFORMATION
  Report Type: Spontaneous
  Country: BE (occurrence: BE)
  Receive Date: 20200624
  Receipt Date: 20200624
  Transmission Date: 20200714
  Serious: Yes (Hospitalization, Other)
  Sender: FDA-Public Use
  Company Number: BE-MICRO LABS LIMITED-ML2020-01896

PATIENT
  Age: 67 Year
  Sex: Male

DRUGS (12)
  1. LERCANIDIPINE [Interacting]
     Active Substance: LERCANIDIPINE
  2. EPLERENONE. [Interacting]
     Active Substance: EPLERENONE
  3. COLCHICINE. [Interacting]
     Active Substance: COLCHICINE
     Indication: GOUT
     Dosage: OVER THE LAST MONTH
  4. MOXONIDINE [Concomitant]
     Active Substance: MOXONIDINE
  5. APIXABAN [Suspect]
     Active Substance: APIXABAN
  6. PANTOPRAZOLE [Concomitant]
     Active Substance: PANTOPRAZOLE
  7. ALLOPURINOL. [Concomitant]
     Active Substance: ALLOPURINOL
  8. CLOPIDOGREL [Interacting]
     Active Substance: CLOPIDOGREL BISULFATE
  9. REPAGLINIDE. [Interacting]
     Active Substance: REPAGLINIDE
     Indication: TYPE 2 DIABETES MELLITUS
  10. METFORMIN [Concomitant]
     Active Substance: METFORMIN HYDROCHLORIDE
  11. SIMVASTATIN. [Interacting]
     Active Substance: SIMVASTATIN
  12. LOSARTAN. [Concomitant]
     Active Substance: LOSARTAN

REACTIONS (3)
  - Hypoglycaemia [Recovered/Resolved]
  - Drug interaction [Unknown]
  - Product administration error [Unknown]
